FAERS Safety Report 20176531 (Version 1)
Quarter: 2021Q4

REPORT INFORMATION
  Report Type: Report from Study
  Country: US (occurrence: US)
  Receive Date: 20211213
  Receipt Date: 20211213
  Transmission Date: 20220303
  Serious: Yes (Death, Other)
  Sender: FDA-Public Use
  Company Number: US-BRISTOL-MYERS SQUIBB COMPANY-BMS-2021-134618

PATIENT
  Sex: Female

DRUGS (2)
  1. DASATINIB [Suspect]
     Active Substance: DASATINIB
     Indication: Chronic myeloid leukaemia
     Dosage: 50 MILLIGRAM
     Route: 065
  2. DASATINIB [Suspect]
     Active Substance: DASATINIB
     Indication: Myelofibrosis

REACTIONS (5)
  - Gastrointestinal haemorrhage [Fatal]
  - Urogenital haemorrhage [Fatal]
  - Thrombocytopenia [Unknown]
  - Ascites [Unknown]
  - Hepatosplenomegaly [Unknown]
